FAERS Safety Report 5441310-9 (Version None)
Quarter: 2007Q3

REPORT INFORMATION
  Report Type: 
  Country: None (occurrence: None)
  Receive Date: 20070903
  Receipt Date: 20070823
  Transmission Date: 20080115
  Serious: Yes (Hospitalization)
  Sender: FDA-Public Use
  Company Number: PHEH2007US11693

PATIENT
  Sex: Female

DRUGS (2)
  1. DIOVAN [Suspect]
  2. TOPROL-XL [Concomitant]

REACTIONS (1)
  - CORONARY ARTERY BYPASS [None]
